FAERS Safety Report 5601397-7 (Version None)
Quarter: 2007Q4

REPORT INFORMATION
  Report Type: 
  Country: None (occurrence: None)
  Receive Date: 20071226
  Receipt Date: 20070207
  Transmission Date: 20080405
  Serious: Yes (Hospitalization)
  Sender: FDA-Public Use
  Company Number: 234432

PATIENT
  Age: 48 Year
  Sex: Female
  Weight: 87.1 kg

DRUGS (3)
  1. RAPTIVA [Suspect]
     Indication: PSORIASIS
     Dates: start: 20061129
  2. PAXIL [Concomitant]
  3. TRIAMCINOLONE CREME (TRIAMCINOLONE ACTONIDE) [Concomitant]

REACTIONS (2)
  - INFLUENZA LIKE ILLNESS [None]
  - MIGRAINE [None]
